FAERS Safety Report 6307331-9 (Version None)
Quarter: 2009Q3

REPORT INFORMATION
  Report Type: 
  Country: None (occurrence: None)
  Receive Date: 20090813
  Receipt Date: 20070530
  Transmission Date: 20100115
  Serious: Yes (Hospitalization)
  Sender: FDA-Public Use
  Company Number: US-ASTRAZENECA-2006UW26519

PATIENT
  Age: 47 Year
  Sex: Female
  Weight: 68.9 kg

DRUGS (10)
  1. SEROQUEL [Suspect]
     Indication: BIPOLAR DISORDER
     Route: 048
     Dates: start: 19990101
  2. SEROQUEL [Suspect]
     Dosage: 75 MG - 400 MG
     Route: 048
     Dates: start: 19990730
  3. HALDOL [Concomitant]
     Dates: start: 19921001
  4. AMITRIPTYLINE [Concomitant]
     Dates: start: 19920322
  5. LISINOPRIL [Concomitant]
     Route: 048
  6. CLONAZEPAM [Concomitant]
     Dosage: STRENGTH - 0.5 MG, 1 MG  DOSE - 1MG - 3 MG DAILY
     Route: 048
     Dates: start: 20060322
  7. RANITIDINE [Concomitant]
     Route: 048
  8. WELLBUTRIN XL [Concomitant]
     Route: 048
  9. LAMICTAL [Concomitant]
     Dosage: STRENGTH - 25 MG, 50 MG, 100 MG  DOSE - 25 MG - 100 MG DAILY
     Route: 048
  10. ZYPREXA [Concomitant]
     Route: 048

REACTIONS (3)
  - DIABETES MELLITUS [None]
  - SELF-INJURIOUS IDEATION [None]
  - TYPE 2 DIABETES MELLITUS [None]
